FAERS Safety Report 5034528-0 (Version None)
Quarter: 2006Q2

REPORT INFORMATION
  Report Type: 
  Country: None (occurrence: None)
  Receive Date: 20060623
  Receipt Date: 20060623
  Transmission Date: 20061013
  Serious: Yes (Life-Threatening, Hospitalization)
  Sender: FDA-Public Use
  Company Number: None

PATIENT
  Age: 78 Year
  Sex: Female
  Weight: 45.5 kg

DRUGS (1)
  1. HEPARIN LOCK FLUSH [Suspect]
     Indication: DRUG THERAPY
     Dosage: 2.5 ML AFTER MEDS GIVEN IV BOLUS
     Route: 040
     Dates: start: 20060525, end: 20060529

REACTIONS (1)
  - HEPARIN-INDUCED THROMBOCYTOPENIA [None]
